FAERS Safety Report 12234456 (Version 2)
Quarter: 2016Q3

REPORT INFORMATION
  Report Type: Spontaneous
  Country: US (occurrence: US)
  Receive Date: 20160404
  Receipt Date: 20160727
  Transmission Date: 20161109
  Serious: No
  Sender: FDA-Public Use
  Company Number: US-GLAXOSMITHKLINE-US2016044405

PATIENT
  Age: 54 Year
  Sex: Male

DRUGS (4)
  1. NICORETTE FRUIT CHILL [Suspect]
     Active Substance: NICOTINE
     Indication: SMOKING CESSATION THERAPY
     Dosage: UNK
  2. NICODERM CQ [Suspect]
     Active Substance: NICOTINE
     Dosage: UNK
     Dates: start: 2014
  3. NICODERM CQ [Suspect]
     Active Substance: NICOTINE
     Indication: SMOKING CESSATION THERAPY
     Dosage: UNK
     Dates: start: 2001
  4. NICORETTE FRUIT CHILL [Suspect]
     Active Substance: NICOTINE
     Dosage: 2 MG, UNK
     Dates: start: 201603, end: 20160329

REACTIONS (3)
  - Application site erythema [Recovered/Resolved]
  - Hiccups [Recovered/Resolved]
  - Application site reaction [Unknown]

NARRATIVE: CASE EVENT DATE: 20160329
